FAERS Safety Report 10093115 (Version 1)
Quarter: 2014Q2

REPORT INFORMATION
  Report Type: Spontaneous
  Country: US (occurrence: US)
  Receive Date: 20140421
  Receipt Date: 20140421
  Transmission Date: 20141212
  Serious: No
  Sender: FDA-Public Use
  Company Number: US-SA-2013SA106130

PATIENT
  Sex: Female

DRUGS (1)
  1. ALLEGRA [Suspect]
     Indication: MULTIPLE ALLERGIES
     Dosage: TAKEN FROM- 3 YEARS AGO
     Route: 048
     Dates: end: 20131014

REACTIONS (2)
  - Nausea [Unknown]
  - Inappropriate schedule of drug administration [Unknown]
